FAERS Safety Report 6967545-1 (Version None)
Quarter: 2010Q3

REPORT INFORMATION
  Report Type: 
  Country: None (occurrence: None)
  Receive Date: 20100901
  Receipt Date: 20100821
  Transmission Date: 20110219
  Serious: Yes (Life-Threatening, Hospitalization, Other)
  Sender: FDA-Public Use
  Company Number: AUR-APL-2010-01637

PATIENT
  Age: 59 Year
  Sex: Male

DRUGS (18)
  1. SIMVASTATIN [Suspect]
     Indication: PRODUCT USED FOR UNKNOWN INDICATION
     Dosage: 20MG - DAILY
  2. FUSIDIC ACID [Suspect]
     Indication: ARTHRITIS BACTERIAL
     Dosage: 500MG - TID
  3. CLARYTHROMYCIN [Concomitant]
  4. GLICLAZIDE [Concomitant]
  5. GENTAMICIN [Concomitant]
  6. CEFTRIAXONE [Concomitant]
  7. FLUCLOXACILLIN [Concomitant]
  8. LANSOPRAZOLE [Concomitant]
  9. ALLOPURINOL [Concomitant]
  10. ATENOLOL [Concomitant]
  11. CLOPIDOGREL [Concomitant]
  12. DIPYRIDAMOLE [Concomitant]
  13. CALCICHEW [Concomitant]
  14. ALFACALCIDOL [Concomitant]
  15. FOLIC ACID [Concomitant]
  16. OROVITE [Concomitant]
  17. ERYTHROPOIETIN B [Concomitant]
  18. IRON SUCROSE [Concomitant]

REACTIONS (3)
  - DRUG TOXICITY [None]
  - GUILLAIN-BARRE SYNDROME [None]
  - RHABDOMYOLYSIS [None]
